FAERS Safety Report 6128513-5 (Version None)
Quarter: 2009Q1

REPORT INFORMATION
  Report Type: 
  Country: None (occurrence: None)
  Receive Date: 20090319
  Receipt Date: 20090305
  Transmission Date: 20090719
  Serious: Yes (Hospitalization)
  Sender: FDA-Public Use
  Company Number: 02100-JPN-06-0528

PATIENT
  Age: 76 Year
  Sex: Female

DRUGS (12)
  1. PLETAL [Suspect]
     Indication: CEREBROVASCULAR ACCIDENT
     Dosage: 100 MG, BID ORAL
     Route: 048
     Dates: start: 20060610
  2. TAMSULOSIN HCL [Concomitant]
  3. MAGNESIUM HYDROXIDE TAB [Concomitant]
  4. AGIOCUR PREGANULES (AGIOCUR PREGRANULES) [Concomitant]
  5. GLIMEPIRIDE [Concomitant]
  6. METFORMIN HCL [Concomitant]
  7. SERTRALINE [Concomitant]
  8. ALMITRINE BISMESILATE (ALMITRINE BISMESILATE) [Concomitant]
  9. RAUBASINE (RAUBASINE) [Concomitant]
  10. PLANTAGO SEED CORTEZ (PLANTAGO SEED CORTEX) [Concomitant]
  11. ASPIRIN [Concomitant]
  12. AMANTADINE HCL [Concomitant]

REACTIONS (1)
  - RENAL CYST [None]
